FAERS Safety Report 4778943-9 (Version None)
Quarter: 2005Q3

REPORT INFORMATION
  Report Type: 
  Country: None (occurrence: None)
  Receive Date: 20050922
  Receipt Date: 20050913
  Transmission Date: 20060218
  Serious: Yes (Life-Threatening, Other)
  Sender: FDA-Public Use
  Company Number: 2005-09-0573

PATIENT
  Age: 44 Year
  Sex: Male

DRUGS (4)
  1. RIBAVIRIN [Suspect]
     Indication: HEPATITIS C
     Dosage: 1000 MG QD ORAL
     Route: 048
  2. INTRON A [Suspect]
     Indication: HEPATITIS C
     Dosage: 5 MIU TIW
  3. ANTIHEMOPHILIC FACTOR (HUMAN) [Concomitant]
  4. ... [Concomitant]

REACTIONS (8)
  - ALPHA 1 FOETOPROTEIN INCREASED [None]
  - HEPATIC CIRRHOSIS [None]
  - HEPATIC NEOPLASM MALIGNANT [None]
  - LIVER TRANSPLANT [None]
  - NO THERAPEUTIC RESPONSE [None]
  - SPLENOMEGALY [None]
  - THROMBOCYTOPENIA [None]
  - TRANSPLANT REJECTION [None]
